FAERS Safety Report 18873380 (Version 1)
Quarter: 2021Q1

REPORT INFORMATION
  Report Type: Report from Study
  Country: CL (occurrence: CL)
  Receive Date: 20210210
  Receipt Date: 20210210
  Transmission Date: 20210420
  Serious: Yes (Other)
  Sender: FDA-Public Use
  Company Number: CL-UCBSA-2021005097

PATIENT
  Age: 77 Year
  Sex: Female

DRUGS (8)
  1. LEVODOPA BENSERAZIDE [Suspect]
     Active Substance: BENSERAZIDE\LEVODOPA
     Dosage: 100/25 MG, ONCE DAILY (QD)
     Route: 048
  2. RASAGILINA [Concomitant]
     Active Substance: RASAGILINE
     Indication: PARKINSON^S DISEASE
     Dosage: UNK
     Route: 048
  3. LEVOTIROXINA [LEVOTHYROXINE SODIUM;LIOTHYRONINE SODIUM] [Concomitant]
     Indication: HYPOTHYROIDISM
     Dosage: 6.25 MILLIGRAM, ONCE DAILY (QD)
  4. LOVASTATINA [Concomitant]
     Active Substance: LOVASTATIN
     Indication: DYSLIPIDAEMIA
     Dosage: UNK
  5. ROTIGOTINE [Suspect]
     Active Substance: ROTIGOTINE
     Indication: PARKINSON^S DISEASE
     Dosage: 6 MILLIGRAM, ONCE DAILY (QD)
     Route: 062
     Dates: start: 20160406
  6. LEVOTIROXINA [LEVOTHYROXINE SODIUM;LIOTHYRONINE SODIUM] [Concomitant]
     Dosage: 75 MILLIGRAM, ONCE DAILY (QD)
     Route: 048
  7. AMITRIPTILINA [AMITRIPTYLINE] [Concomitant]
     Active Substance: AMITRIPTYLINE HYDROCHLORIDE
     Indication: PARKINSON^S DISEASE
     Dosage: UNK
     Route: 048
  8. LEVODOPA BENSERAZIDE [Suspect]
     Active Substance: BENSERAZIDE\LEVODOPA
     Indication: PARKINSON^S DISEASE
     Dosage: 400/100 MG, ONCE DAILY (QD)
     Route: 048

REACTIONS (2)
  - Retinal disorder [Recovering/Resolving]
  - Conjunctivitis [Recovering/Resolving]

NARRATIVE: CASE EVENT DATE: 20201214
